FAERS Safety Report 8876341 (Version 1)
Quarter: 2012Q4

REPORT INFORMATION
  Report Type: Report from Study
  Country: CA (occurrence: CA)
  Receive Date: 20121031
  Receipt Date: 20121031
  Transmission Date: 20130627
  Serious: Yes (Other)
  Sender: FDA-Public Use
  Company Number: CA-JNJFOC-20121011282

PATIENT
  Sex: Female
  Weight: 83 kg

DRUGS (4)
  1. REMICADE [Suspect]
     Indication: CROHN^S DISEASE
     Dosage: start date: conflictingly reported as 2011
     Route: 042
     Dates: start: 2001
  2. VITAMIN B12 [Concomitant]
     Dosage: start date: since 1980^s
     Route: 065
  3. ESTROGEL [Concomitant]
     Route: 062
     Dates: start: 201206
  4. HORMONE REPLACEMENT PILLS [Concomitant]
     Route: 065
     Dates: start: 201206

REACTIONS (1)
  - Osteopenia [Unknown]
